FAERS Safety Report 23831627 (Version 4)
Quarter: 2025Q1

REPORT INFORMATION
  Report Type: Spontaneous
  Country: US (occurrence: US)
  Receive Date: 20240508
  Receipt Date: 20250225
  Transmission Date: 20250409
  Serious: Yes (Other)
  Sender: AMGEN
  Company Number: US-AMGEN-USASP2024087921

PATIENT
  Age: 71 Year
  Sex: Female

DRUGS (3)
  1. XGEVA [Suspect]
     Active Substance: DENOSUMAB
     Indication: Product used for unknown indication
     Route: 065
     Dates: end: 2023
  2. IBRANCE [Concomitant]
     Active Substance: PALBOCICLIB
  3. IBRANCE [Concomitant]
     Active Substance: PALBOCICLIB

REACTIONS (6)
  - Neoplasm malignant [Unknown]
  - Osteonecrosis of jaw [Unknown]
  - Mastectomy [Unknown]
  - Road traffic accident [Unknown]
  - Adverse drug reaction [Unknown]
  - Infection [Unknown]
